FAERS Safety Report 15946788 (Version 1)
Quarter: 2019Q1

REPORT INFORMATION
  Report Type: Spontaneous
  Country: FR (occurrence: FR)
  Receive Date: 20190211
  Receipt Date: 20190211
  Transmission Date: 20190417
  Serious: Yes (Life-Threatening, Other)
  Sender: FDA-Public Use
  Company Number: FR-MYLANLABS-2019M1011571

PATIENT
  Sex: Female
  Weight: 3 kg

DRUGS (5)
  1. LARGACTIL                          /00011901/ [Suspect]
     Active Substance: CHLORPROMAZINE
     Indication: PSYCHOTIC DISORDER
     Dosage: 3 DROP, QD(TOUS LES SOIRS)
     Route: 064
     Dates: start: 201709, end: 20180623
  2. TERCIAN                            /00759301/ [Suspect]
     Active Substance: CYAMEMAZINE
     Indication: PSYCHOTIC DISORDER
     Dosage: 3 DROP, QD(LE SOIR)
     Route: 064
     Dates: start: 201709, end: 201804
  3. SERTRALINE [Suspect]
     Active Substance: SERTRALINE HYDROCHLORIDE
     Indication: PSYCHOTIC DISORDER
     Dosage: 150 MILLIGRAM, QD
     Route: 064
     Dates: start: 201709, end: 20180623
  4. VENLAFAXINE [Suspect]
     Active Substance: VENLAFAXINE HYDROCHLORIDE
     Indication: PSYCHOTIC DISORDER
     Dosage: 75 MILLIGRAM, QD
     Route: 064
     Dates: start: 201709, end: 20180623
  5. TRANDATE [Suspect]
     Active Substance: LABETALOL HYDROCHLORIDE
     Indication: HYPERTENSION
     Dosage: 200 MILLIGRAM, QD
     Route: 064
     Dates: start: 2018, end: 20180623

REACTIONS (4)
  - Neonatal respiratory distress [Recovered/Resolved]
  - Hypotonia neonatal [Recovered/Resolved]
  - Foetal exposure during pregnancy [Recovered/Resolved]
  - Bradycardia neonatal [Recovered/Resolved]

NARRATIVE: CASE EVENT DATE: 20180623
